FAERS Safety Report 4839434-X (Version None)
Quarter: 2005Q4

REPORT INFORMATION
  Report Type: 
  Country: None (occurrence: None)
  Receive Date: 20051129
  Receipt Date: 20050404
  Transmission Date: 20060501
  Serious: No
  Sender: FDA-Public Use
  Company Number: US-GLAXOSMITHKLINE-A0552618A

PATIENT
  Sex: Male

DRUGS (2)
  1. WELLBUTRIN SR [Suspect]
     Indication: DRUG USE FOR UNKNOWN INDICATION
     Dosage: 800MG SINGLE DOSE
     Route: 045
     Dates: start: 20050403
  2. AMPHETAMINES [Concomitant]

REACTIONS (3)
  - AGITATION [None]
  - DRUG ADMINISTRATION ERROR [None]
  - OVERDOSE [None]
